FAERS Safety Report 13540039 (Version 2)
Quarter: 2017Q2

REPORT INFORMATION
  Report Type: Spontaneous
  Country: US (occurrence: US)
  Receive Date: 20170512
  Receipt Date: 20170516
  Transmission Date: 20170830
  Serious: No
  Sender: FDA-Public Use
  Company Number: US-BAYER-2017-090145

PATIENT
  Age: 75 Year
  Sex: Female
  Weight: 77.1 kg

DRUGS (3)
  1. MIRALAX [Suspect]
     Active Substance: POLYETHYLENE GLYCOL 3350
     Indication: GASTRITIS
     Dosage: UNK
     Route: 048
     Dates: start: 20170510
  2. COLACE [Concomitant]
     Active Substance: DOCUSATE SODIUM
     Indication: GASTRITIS
     Dosage: UNK
  3. MILK OF MAGNESIA ORIGINAL [Suspect]
     Active Substance: MAGNESIUM HYDROXIDE
     Indication: GASTRITIS
     Dosage: 60 ML, WITH WATER
     Route: 048
     Dates: start: 20170412, end: 20170504

REACTIONS (3)
  - Off label use [None]
  - Inappropriate schedule of drug administration [None]
  - Product use in unapproved indication [Unknown]

NARRATIVE: CASE EVENT DATE: 20170412
